FAERS Safety Report 5049465-5 (Version None)
Quarter: 2006Q3

REPORT INFORMATION
  Report Type: 
  Country: None (occurrence: None)
  Receive Date: 20060711
  Receipt Date: 20060711
  Transmission Date: 20061208
  Serious: Yes (Hospitalization)
  Sender: FDA-Public Use
  Company Number: None

PATIENT
  Age: 69 Year
  Sex: Female

DRUGS (1)
  1. ZOSYN [Suspect]
     Indication: INFECTION
     Dosage: 3.375 MG Q6H IV BOLUS
     Route: 040
     Dates: start: 20060604, end: 20060605

REACTIONS (3)
  - DYSPNOEA [None]
  - URTICARIA [None]
  - WHEEZING [None]
